FAERS Safety Report 6217344-3 (Version None)
Quarter: 2009Q2

REPORT INFORMATION
  Report Type: 
  Country: None (occurrence: None)
  Receive Date: 20090608
  Receipt Date: 20090403
  Transmission Date: 20091009
  Serious: No
  Sender: FDA-Public Use
  Company Number: A0718930A

PATIENT
  Age: 36 Year
  Sex: Female

DRUGS (4)
  1. WELLBUTRIN XL [Suspect]
     Indication: DEPRESSION
     Dosage: 300MG PER DAY
     Route: 048
     Dates: start: 20080301
  2. ADVIL [Concomitant]
  3. SUBOXONE [Concomitant]
  4. ADVIL [Concomitant]

REACTIONS (11)
  - ANGER [None]
  - CRYING [None]
  - DIZZINESS [None]
  - DRUG INEFFECTIVE [None]
  - FLATULENCE [None]
  - FORMICATION [None]
  - INCREASED APPETITE [None]
  - MENTAL IMPAIRMENT [None]
  - POOR QUALITY SLEEP [None]
  - PRODUCT QUALITY ISSUE [None]
  - WEIGHT INCREASED [None]
